FAERS Safety Report 5604568-9 (Version None)
Quarter: 2008Q1

REPORT INFORMATION
  Report Type: 
  Country: None (occurrence: None)
  Receive Date: 20080128
  Receipt Date: 20080116
  Transmission Date: 20080703
  Serious: Yes (Other)
  Sender: FDA-Public Use
  Company Number: US-MERCK-0706USA00990

PATIENT
  Age: 68 Year
  Sex: Female

DRUGS (3)
  1. FOSAMAX [Suspect]
     Indication: OSTEOPOROSIS
     Route: 048
     Dates: end: 20050101
  2. FOSAMAX PLUS D [Suspect]
     Indication: OSTEOPOROSIS
     Route: 048
  3. ACTONEL [Concomitant]
     Route: 065
     Dates: start: 20050628

REACTIONS (11)
  - BACK INJURY [None]
  - CARDIAC FAILURE [None]
  - DEPRESSION [None]
  - DIABETIC NEUROPATHY [None]
  - DIASTOLIC DYSFUNCTION [None]
  - ONYCHOMYCOSIS [None]
  - OSTEOARTHRITIS [None]
  - PAIN IN JAW [None]
  - PERIPHERAL VASCULAR DISORDER [None]
  - TOOTH LOSS [None]
  - TRISMUS [None]
